FAERS Safety Report 6408268-7 (Version None)
Quarter: 2009Q4

REPORT INFORMATION
  Report Type: 
  Country: None (occurrence: None)
  Receive Date: 20091021
  Receipt Date: 20091008
  Transmission Date: 20100525
  Serious: Yes (Other)
  Sender: FDA-Public Use
  Company Number: JP-PFIZER INC-2009282983

PATIENT
  Age: 67 Year

DRUGS (7)
  1. CHAMPIX [Suspect]
     Indication: SMOKING CESSATION THERAPY
     Route: 048
     Dates: start: 20090828, end: 20090831
  2. ASPIRIN [Concomitant]
     Route: 048
  3. PLETAL [Concomitant]
  4. SIMVASTATIN [Concomitant]
     Route: 048
  5. DOGMATYL [Concomitant]
  6. DEPAS [Concomitant]
     Route: 048
  7. AMOBAN [Concomitant]
     Route: 048

REACTIONS (1)
  - RETINAL ARTERY OCCLUSION [None]
